FAERS Safety Report 5986051-4 (Version None)
Quarter: 2008Q4

REPORT INFORMATION
  Report Type: 
  Country: None (occurrence: None)
  Receive Date: 20081203
  Receipt Date: 20081203
  Transmission Date: 20090506
  Serious: No
  Sender: FDA-Public Use
  Company Number: None

PATIENT
  Age: 50 Year
  Sex: Female
  Weight: 70 kg

DRUGS (1)
  1. MORPHINE [Suspect]
     Indication: PAIN MANAGEMENT
     Dosage: 2MG PRN IV BOLUS
     Route: 040
     Dates: start: 20081015, end: 20081202

REACTIONS (2)
  - PRODUCT QUALITY ISSUE [None]
  - RASH PRURITIC [None]
